FAERS Safety Report 5974297-0 (Version None)
Quarter: 2008Q4

REPORT INFORMATION
  Report Type: 
  Country: None (occurrence: None)
  Receive Date: 20081201
  Receipt Date: 20081120
  Transmission Date: 20090506
  Serious: Yes (Hospitalization, Other)
  Sender: FDA-Public Use
  Company Number: US-PFIZER INC-2008046160

PATIENT
  Sex: Female

DRUGS (9)
  1. CHANTIX [Suspect]
     Indication: SMOKING CESSATION THERAPY
     Route: 048
  2. WARFARIN SODIUM [Concomitant]
  3. BUPROPION HYDROCHLORIDE [Concomitant]
  4. AMIODARONE HCL [Concomitant]
  5. LOVASTATIN [Concomitant]
  6. CARTIA XT [Concomitant]
  7. METFORMIN HCL [Concomitant]
  8. DRUG, UNSPECIFIED [Concomitant]
  9. HYDROCODONE BITARTRATE [Concomitant]

REACTIONS (4)
  - ARTHRITIS [None]
  - CARDIAC DISORDER [None]
  - CELLULITIS [None]
  - DIABETES MELLITUS [None]
